FAERS Safety Report 10182569 (Version 1)
Quarter: 2014Q2

REPORT INFORMATION
  Report Type: Spontaneous
  Country: GB (occurrence: None)
  Receive Date: 20140516
  Receipt Date: 20140516
  Transmission Date: 20141212
  Serious: Yes (Hospitalization)
  Sender: FDA-Public Use
  Company Number: AUR-APL-2014-05552

PATIENT
  Age: 78 Year
  Sex: Male

DRUGS (10)
  1. AMOXICILLIN+CLAVULANIC ACID (CLAVULANIC ACID, AMOXICILLIN) [Suspect]
     Indication: PRODUCT USED FOR UNKNOWN INDICATION
     Dosage: 1875 MG
     Route: 048
     Dates: start: 20140212, end: 20140218
  2. CALCICHEW D3 (LEKOVIT CA) [Concomitant]
  3. CITALOPRAM (CITALOPRAM) [Concomitant]
  4. DOCUSATE (DOCUSATE) [Concomitant]
  5. LACTULOSE (LACTULOSE) [Concomitant]
  6. LAXIDO (ELECTROLYTES NOS W/MACROGOL 3350) [Concomitant]
  7. MIRTAZAPINE (MIRTAZAPINE) [Concomitant]
  8. PARACETAMOL (PARACETAMOL) [Concomitant]
  9. SENNA LIQUID EXTRACT (SENNA ALEXANDRIA LIQUID EXTRACT) [Concomitant]
  10. TAMOSULOSIN (TAMOSULOSIN) [Concomitant]

REACTIONS (7)
  - Cholestasis [None]
  - General physical health deterioration [None]
  - Productive cough [None]
  - Urine output decreased [None]
  - Hypophagia [None]
  - Mobility decreased [None]
  - Sepsis [None]
